FAERS Safety Report 7513660-3 (Version None)
Quarter: 2011Q2

REPORT INFORMATION
  Report Type: 
  Country: None (occurrence: None)
  Receive Date: 20110531
  Receipt Date: 20110415
  Transmission Date: 20111010
  Serious: Yes (Death)
  Sender: FDA-Public Use
  Company Number: US-BAYER-200839175NA

PATIENT
  Age: 55 Year
  Sex: Female
  Weight: 76 kg

DRUGS (65)
  1. LONITEN [Concomitant]
  2. COUMADIN [Concomitant]
  3. DULCOLAX [Concomitant]
  4. IRON SULFATETHIAMIN COMPOUND TAB [Concomitant]
  5. MAGNEVIST [Suspect]
     Indication: NUCLEAR MAGNETIC RESONANCE IMAGING BRAIN
     Dates: start: 20041023, end: 20041023
  6. ZEMPLAR [Concomitant]
  7. REGLAN [Concomitant]
  8. FLEXERIL [Concomitant]
  9. DILAUDID [Concomitant]
  10. NEPHROVITE [VIT C,VIT H,B5,B12,B9,B3,B6,B2,B1 HCL] [Concomitant]
  11. OMNISCAN [Suspect]
     Indication: NUCLEAR MAGNETIC RESONANCE IMAGING BRAIN
     Dates: start: 20001221, end: 20001221
  12. HUMALOG [Concomitant]
     Indication: DIABETES MELLITUS
  13. PLAVIX [Concomitant]
  14. ARANESP [Concomitant]
  15. NORCO [Concomitant]
  16. ZOLOFT [Concomitant]
  17. CLONAZEPAM [Concomitant]
  18. ISORDIL [Concomitant]
  19. MAGNEVIST [Suspect]
     Dosage: UNK
     Dates: start: 20041024, end: 20041024
  20. LANTUS [Concomitant]
  21. OXYCODONE HCL [Concomitant]
     Indication: PAIN
  22. PROCRIT [Concomitant]
  23. PROTONIX [Concomitant]
  24. HYDRALAZINE HCL [Concomitant]
  25. ANTIBIOTICS [Concomitant]
  26. ELAVIL [Concomitant]
  27. ALU-CAP [Concomitant]
  28. OPTIMARK [Suspect]
     Indication: NUCLEAR MAGNETIC RESONANCE IMAGING
     Dates: start: 20040611, end: 20040611
  29. NORVASC [Concomitant]
  30. OXYGEN [Concomitant]
     Indication: CHRONIC OBSTRUCTIVE PULMONARY DISEASE
  31. VASOTEC [Concomitant]
  32. PHOSLO [Concomitant]
  33. ANTIVERT [Concomitant]
  34. NEURONTIN [Concomitant]
  35. PREVACID [Concomitant]
  36. ALBUTEROL SULFATE AUTOHALER [Concomitant]
  37. LANOXIN [Concomitant]
  38. METOPROLOL TARTRATE [Concomitant]
  39. LISINOPRIL [Concomitant]
  40. FOLIC ACID [Concomitant]
  41. QUININE SULFATE [Concomitant]
  42. ZESTRIL [Concomitant]
  43. XANAX [Concomitant]
  44. MYLANTA [ALUMINIUM HYDROXIDE GEL, DRIED,MAGNESIUM HYDROXIDE,SIMETICONE [Concomitant]
  45. ATROVENT [Concomitant]
  46. MAGNEVIST [Suspect]
     Dosage: UNK
     Dates: start: 20010130, end: 20010130
  47. LEXAPRO [Concomitant]
  48. COREG [Concomitant]
  49. VENOFER [Concomitant]
  50. VALIUM [Concomitant]
  51. PHENERGAN HCL [Concomitant]
  52. COMBIVENT [Concomitant]
  53. DURAGESIC-100 [Concomitant]
  54. RENAGEL [Concomitant]
  55. IMDUR [Concomitant]
  56. NITROGLYCERIN [Concomitant]
  57. IRON SUPPLEMENT [Concomitant]
     Indication: ANAEMIA
  58. LIPITOR [Concomitant]
  59. ATACAND [Concomitant]
  60. INSULIN [Concomitant]
  61. CATAPRES [Concomitant]
  62. AMBIEN [Concomitant]
  63. LOPRESSOR [Concomitant]
  64. NYSTATIN [Concomitant]
  65. COZAAR [Concomitant]

REACTIONS (23)
  - SKIN EXFOLIATION [None]
  - PAIN OF SKIN [None]
  - PARALYSIS [None]
  - SKIN WARM [None]
  - PAIN [None]
  - CHEST PAIN [None]
  - ACTIVITIES OF DAILY LIVING IMPAIRED [None]
  - JOINT STIFFNESS [None]
  - MUSCULAR WEAKNESS [None]
  - JOINT CONTRACTURE [None]
  - ANXIETY [None]
  - RASH MACULAR [None]
  - SKIN DISCOLOURATION [None]
  - EMOTIONAL DISTRESS [None]
  - SCAR [None]
  - SKIN HYPERTROPHY [None]
  - HYPOAESTHESIA [None]
  - NEPHROGENIC SYSTEMIC FIBROSIS [None]
  - MOBILITY DECREASED [None]
  - SKIN TIGHTNESS [None]
  - OEDEMA PERIPHERAL [None]
  - ANHEDONIA [None]
  - DRY SKIN [None]
